FAERS Safety Report 14630512 (Version 2)
Quarter: 2018Q2

REPORT INFORMATION
  Report Type: Report from Study
  Country: CA (occurrence: CA)
  Receive Date: 20180313
  Receipt Date: 20180511
  Transmission Date: 20180711
  Serious: Yes (Hospitalization, Other)
  Sender: FDA-Public Use
  Company Number: CA-GLAXOSMITHKLINE-CA2017GSK196413

PATIENT
  Sex: Female

DRUGS (4)
  1. MEPOLIZUMAB [Suspect]
     Active Substance: MEPOLIZUMAB
     Indication: ASTHMA
     Dosage: 100 MG, Z
     Route: 042
     Dates: start: 20170927
  2. MEPOLIZUMAB [Suspect]
     Active Substance: MEPOLIZUMAB
     Dosage: 100 MG, Z
     Route: 042
  3. VENTOLIN [Suspect]
     Active Substance: ALBUTEROL SULFATE
     Indication: ASTHMA
     Dosage: 2 PUFF(S), PRN
  4. FLOVENT DISKUS [Suspect]
     Active Substance: FLUTICASONE PROPIONATE
     Indication: PRODUCT USED FOR UNKNOWN INDICATION
     Dosage: 2 PUFF(S), BID

REACTIONS (16)
  - Blood test abnormal [Unknown]
  - Productive cough [Unknown]
  - Drug ineffective [Unknown]
  - Chest X-ray abnormal [Unknown]
  - Oedema peripheral [Unknown]
  - Wheezing [Recovering/Resolving]
  - Aortic disorder [Unknown]
  - Hypernatraemia [Unknown]
  - Asthma [Recovering/Resolving]
  - Pneumonia [Unknown]
  - Dyspnoea [Recovering/Resolving]
  - Oropharyngeal pain [Unknown]
  - Respiratory disorder [Unknown]
  - Scoliosis [Unknown]
  - Cardiac failure [Unknown]
  - Obstructive airways disorder [Unknown]
